FAERS Safety Report 6997442-7 (Version None)
Quarter: 2010Q3

REPORT INFORMATION
  Report Type: 
  Country: None (occurrence: None)
  Receive Date: 20100918
  Receipt Date: 20091013
  Transmission Date: 20110219
  Serious: No
  Sender: FDA-Public Use
  Company Number: US-WYE-H11627309

PATIENT
  Sex: Male
  Weight: 81.72 kg

DRUGS (3)
  1. PRISTIQ [Suspect]
     Indication: DEPRESSION
     Dosage: 50 MG DAILY
     Route: 048
     Dates: start: 20091010
  2. SIMVASTATIN [Concomitant]
  3. PREVACID [Concomitant]

REACTIONS (1)
  - INSOMNIA [None]
